FAERS Safety Report 4875666-2 (Version None)
Quarter: 2006Q1

REPORT INFORMATION
  Report Type: 
  Country: None (occurrence: None)
  Receive Date: 20060105
  Receipt Date: 20051223
  Transmission Date: 20060701
  Serious: Yes (Hospitalization)
  Sender: FDA-Public Use
  Company Number: 2005PL000103

PATIENT
  Age: 40 Year
  Sex: Female

DRUGS (5)
  1. AZATHIOPRINE [Suspect]
     Indication: SYSTEMIC LUPUS ERYTHEMATOSUS
     Dosage: SEE IMAGE
     Dates: start: 19970101, end: 19990101
  2. AZATHIOPRINE [Suspect]
     Indication: SYSTEMIC LUPUS ERYTHEMATOSUS
     Dosage: SEE IMAGE
     Dates: start: 20020901, end: 20040101
  3. METHYLPREDNISOLONE [Concomitant]
  4. CYCLOPHOSPHAMIDE [Concomitant]
  5. HYDROXYCHLOROQUINE SULFATE [Concomitant]

REACTIONS (3)
  - HAEMATEMESIS [None]
  - VARICES OESOPHAGEAL [None]
  - VENOOCCLUSIVE LIVER DISEASE [None]
